FAERS Safety Report 8973737 (Version 2)
Quarter: 2013Q1

REPORT INFORMATION
  Report Type: Report from Study
  Country: BE (occurrence: BE)
  Receive Date: 20121218
  Receipt Date: 20130108
  Transmission Date: 20140127
  Serious: Yes (Hospitalization)
  Sender: FDA-Public Use
  Company Number: BE-GLAXOSMITHKLINE-Z0017476B

PATIENT
  Age: 55 Year
  Sex: Male

DRUGS (2)
  1. OFATUMUMAB [Suspect]
     Indication: CHRONIC LYMPHOCYTIC LEUKAEMIA
     Dosage: 300MG CYCLIC
     Route: 042
     Dates: start: 20120416, end: 20121008
  2. BENDAMUSTINE [Suspect]
     Indication: CHRONIC LYMPHOCYTIC LEUKAEMIA
     Dosage: 70MGM2 CYCLIC
     Route: 042
     Dates: start: 20120416, end: 20121009

REACTIONS (1)
  - Febrile neutropenia [Not Recovered/Not Resolved]
